FAERS Safety Report 18799175 (Version 1)
Quarter: 2021Q1

REPORT INFORMATION
  Report Type: Report from Study
  Country: US (occurrence: US)
  Receive Date: 20210128
  Receipt Date: 20210128
  Transmission Date: 20210419
  Serious: Yes (Other)
  Sender: FDA-Public Use
  Company Number: US-PFIZER INC-2021029158

PATIENT

DRUGS (4)
  1. ADENOSINE PHOSPHATE [Suspect]
     Active Substance: ADENOSINE PHOSPHATE
     Indication: DIAGNOSTIC PROCEDURE
     Dosage: UNK
     Route: 042
  2. ADENOSINE PHOSPHATE [Suspect]
     Active Substance: ADENOSINE PHOSPHATE
     Indication: VASODILATION PROCEDURE
     Dosage: TOTAL DOSE DILUTED IN 30 ML OF NORMAL SALINE (RATE: 140 UG/KG/MIN)
     Route: 042
  3. THALLIUM?201 [Suspect]
     Active Substance: THALLIUM TL-201
     Indication: DIAGNOSTIC PROCEDURE
     Dosage: WEIGHT?ADJUSTED DOSE (RANGE 2.5 TO 4.0 MCI)
     Route: 040
  4. SODIUM CHLORIDE. [Concomitant]
     Active Substance: SODIUM CHLORIDE
     Dosage: 10 ML (FLUSH)
     Route: 042

REACTIONS (2)
  - Bronchospasm [Unknown]
  - Respiratory failure [Unknown]
